FAERS Safety Report 7800985-7 (Version None)
Quarter: 2011Q4

REPORT INFORMATION
  Report Type: 
  Country: None (occurrence: None)
  Receive Date: 20111007
  Receipt Date: 20110926
  Transmission Date: 20120403
  Serious: Yes (Hospitalization)
  Sender: FDA-Public Use
  Company Number: DE-BIOGENIDEC-2011BI031345

PATIENT
  Sex: Female

DRUGS (2)
  1. TYSABRI [Suspect]
     Indication: PRODUCT USED FOR UNKNOWN INDICATION
     Dates: start: 20081001, end: 20110707
  2. MARCUMAR [Concomitant]
     Indication: DEEP VEIN THROMBOSIS
     Dates: start: 20110101

REACTIONS (2)
  - MULTIPLE SCLEROSIS RELAPSE [None]
  - SECONDARY PROGRESSIVE MULTIPLE SCLEROSIS [None]
